FAERS Safety Report 12924813 (Version 1)
Quarter: 2016Q4

REPORT INFORMATION
  Report Type: Report from Study
  Country: US (occurrence: US)
  Receive Date: 20161109
  Receipt Date: 20161109
  Transmission Date: 20170207
  Serious: Yes (Hospitalization, Other)
  Sender: FDA-Public Use
  Company Number: US-BRISTOL-MYERS SQUIBB COMPANY-BMS-2016-086241

PATIENT
  Sex: Female

DRUGS (2)
  1. NIVOLUMAB [Suspect]
     Active Substance: NIVOLUMAB
     Indication: MALIGNANT MELANOMA
     Dosage: UNK UNK, Q3WK
     Route: 042
     Dates: start: 20160902
  2. IPILIMUMAB [Suspect]
     Active Substance: IPILIMUMAB
     Indication: MALIGNANT MELANOMA
     Dosage: UNK, Q3WK
     Route: 042
     Dates: start: 20160902

REACTIONS (9)
  - Headache [Recovered/Resolved]
  - Pruritus [Unknown]
  - Thirst decreased [Unknown]
  - Fatigue [Unknown]
  - Nonspecific reaction [Unknown]
  - Frequent bowel movements [Unknown]
  - Urine output increased [Unknown]
  - Abdominal pain upper [Unknown]
  - Loss of consciousness [Unknown]
